FAERS Safety Report 4327177-0 (Version None)
Quarter: 2004Q1

REPORT INFORMATION
  Report Type: 
  Country: None (occurrence: None)
  Receive Date: 20040330
  Receipt Date: 20040319
  Transmission Date: 20041129
  Serious: Yes (Other)
  Sender: FDA-Public Use
  Company Number: PHNU2004DE01285

PATIENT
  Age: 63 Year

DRUGS (6)
  1. PROVAS [Suspect]
     Indication: HYPERTENSION
     Route: 048
  2. MOXONIDINE [Concomitant]
     Indication: HYPERTENSION
     Route: 048
  3. AMLODIPINE [Concomitant]
     Indication: HYPERTENSION
     Route: 048
  4. HYDROCHLOROTHIAZIDE [Concomitant]
     Route: 048
  5. REPAGLINIDE [Concomitant]
     Indication: DIABETES MELLITUS
     Route: 048
  6. FENOFIBRATE [Concomitant]
     Indication: HYPERCHOLESTEROLAEMIA
     Route: 048

REACTIONS (1)
  - DEPRESSION [None]
